FAERS Safety Report 4943256-9 (Version None)
Quarter: 2006Q1

REPORT INFORMATION
  Report Type: 
  Country: None (occurrence: None)
  Receive Date: 20060314
  Receipt Date: 20060110
  Transmission Date: 20060701
  Serious: Yes (Other)
  Sender: FDA-Public Use
  Company Number: US-SANOFI-SYNTHELABO-A03200600200

PATIENT
  Sex: Female

DRUGS (2)
  1. AMBIEN [Suspect]
     Route: 048
     Dates: start: 20050601
  2. TEGRETOL [Interacting]
     Route: 048
     Dates: start: 20050601

REACTIONS (2)
  - BLOOD SODIUM DECREASED [None]
  - DRUG INTERACTION [None]
